FAERS Safety Report 25461126 (Version 3)
Quarter: 2025Q4

REPORT INFORMATION
  Report Type: Report from Study
  Country: EU (occurrence: EU)
  Receive Date: 20250620
  Receipt Date: 20251010
  Transmission Date: 20260117
  Serious: Yes (Hospitalization)
  Sender: PFIZER
  Company Number: EU-ASTRAZENECA-202506GLO001863DE

PATIENT
  Age: 53 Year
  Sex: Female

DRUGS (9)
  1. EPIRUBICIN HYDROCHLORIDE [Suspect]
     Active Substance: EPIRUBICIN HYDROCHLORIDE
     Indication: Breast cancer
     Dosage: 90 MG/M2, ONCE EVERY 3 WK
     Route: 042
     Dates: start: 20241206, end: 20250207
  2. PEMBROLIZUMAB [Suspect]
     Active Substance: PEMBROLIZUMAB
     Indication: Breast cancer
     Dosage: 200 MG, ONCE EVERY 3 WK
     Route: 042
     Dates: start: 20240823, end: 20250505
  3. CYCLOPHOSPHAMIDE [Suspect]
     Active Substance: CYCLOPHOSPHAMIDE
     Indication: Breast cancer
     Dosage: 600 MG/M2, ONCE EVERY 3 WK (INJECTION)
     Route: 042
     Dates: start: 20241206, end: 20250207
  4. PACLITAXEL [Suspect]
     Active Substance: PACLITAXEL
     Indication: Breast cancer
     Dosage: 80 MILLIGRAM/SQ. METER
     Route: 042
     Dates: start: 20240823, end: 20241018
  5. PACLITAXEL [Suspect]
     Active Substance: PACLITAXEL
     Dosage: 60 MILLIGRAM/SQ. METER
     Route: 065
     Dates: start: 20241108, end: 20241115
  6. CARBOPLATIN [Suspect]
     Active Substance: CARBOPLATIN
     Indication: Breast cancer
     Dosage: 1.5 AUC
     Route: 042
     Dates: start: 20240823, end: 20241122
  7. PALONOSETRON HYDROCHLORIDE [Concomitant]
     Active Substance: PALONOSETRON HYDROCHLORIDE
     Dosage: UNK
     Route: 048
     Dates: start: 20240823
  8. MOVICOL [Concomitant]
     Active Substance: POLYETHYLENE GLYCOL 3350\POTASSIUM CHLORIDE\SODIUM BICARBONATE\SODIUM CHLORIDE
     Indication: Constipation
     Dosage: UNK
     Route: 048
     Dates: start: 20240830
  9. NETUPITANT [Concomitant]
     Active Substance: NETUPITANT
     Dosage: UNK
     Route: 048
     Dates: start: 20240823

REACTIONS (1)
  - Pancreatitis [Not Recovered/Not Resolved]

NARRATIVE: CASE EVENT DATE: 20250603
